FAERS Safety Report 20999262 (Version 1)
Quarter: 2022Q2

REPORT INFORMATION
  Report Type: Spontaneous
  Country: US (occurrence: US)
  Receive Date: 20220623
  Receipt Date: 20220623
  Transmission Date: 20220721
  Serious: Yes (Other)
  Sender: FDA-Public Use
  Company Number: US-SA-SAC20220622000402

PATIENT
  Sex: Male

DRUGS (5)
  1. AUBAGIO [Suspect]
     Active Substance: TERIFLUNOMIDE
     Indication: Essential hypertension
     Dosage: 14 MG, QD
     Route: 048
     Dates: start: 202108
  2. AUBAGIO [Suspect]
     Active Substance: TERIFLUNOMIDE
     Indication: Hyperlipidaemia
  3. AUBAGIO [Suspect]
     Active Substance: TERIFLUNOMIDE
     Indication: Multiple sclerosis
  4. AUBAGIO [Suspect]
     Active Substance: TERIFLUNOMIDE
     Indication: Rheumatoid arthritis
  5. AUBAGIO [Suspect]
     Active Substance: TERIFLUNOMIDE
     Indication: Gastrooesophageal reflux disease

REACTIONS (4)
  - Secondary progressive multiple sclerosis [Not Recovered/Not Resolved]
  - Primary progressive multiple sclerosis [Not Recovered/Not Resolved]
  - Product use in unapproved indication [Unknown]
  - Therapeutic response decreased [Unknown]
